FAERS Safety Report 23702574 (Version 1)
Quarter: 2024Q2

REPORT INFORMATION
  Report Type: Spontaneous
  Country: US (occurrence: None)
  Receive Date: 20240403
  Receipt Date: 20240403
  Transmission Date: 20240715
  Serious: No
  Sender: FDA-Public Use
  Company Number: None

PATIENT
  Age: 69 Year
  Sex: Male
  Weight: 84.4 kg

DRUGS (1)
  1. STELARA [Suspect]
     Active Substance: USTEKINUMAB
     Indication: Colitis ulcerative
     Dosage: 90 MG/ML EVERY 8 WEEKS SUBCUTANEOUS
     Route: 058
     Dates: start: 20220211

REACTIONS (1)
  - Uveitis [None]

NARRATIVE: CASE EVENT DATE: 20231220
